FAERS Safety Report 4535918-2 (Version None)
Quarter: 2004Q4

REPORT INFORMATION
  Report Type: 
  Country: None (occurrence: None)
  Receive Date: 20041222
  Receipt Date: 20041222
  Transmission Date: 20050328
  Serious: No
  Sender: FDA-Public Use
  Company Number: None

PATIENT
  Age: 74 Year
  Sex: Female
  Weight: 63.5036 kg

DRUGS (1)
  1. CRESTOR [Suspect]
     Indication: BLOOD CHOLESTEROL INCREASED
     Dosage: 1/DAILY/ORAL
     Route: 048
     Dates: start: 20041210, end: 20041211

REACTIONS (5)
  - ASTHENIA [None]
  - DIZZINESS [None]
  - HEART RATE IRREGULAR [None]
  - PARAESTHESIA [None]
  - PERIPHERAL COLDNESS [None]
